FAERS Safety Report 5672473-8 (Version None)
Quarter: 2008Q1

REPORT INFORMATION
  Report Type: 
  Country: None (occurrence: None)
  Receive Date: 20080318
  Receipt Date: 20080318
  Transmission Date: 20080703
  Serious: No
  Sender: FDA-Public Use
  Company Number: None

PATIENT
  Sex: Male
  Weight: 66.2252 kg

DRUGS (1)
  1. BOTOX (SEE: EXHIBIT II) (STMT. -OCHSNER CLINICS) [Suspect]
     Indication: DYSTONIA
     Dosage: SEE: EXHIBIT II
     Dates: start: 20070726

REACTIONS (8)
  - ABNORMAL SENSATION IN EYE [None]
  - EAR DISCOMFORT [None]
  - HEARING IMPAIRED [None]
  - MASTICATION DISORDER [None]
  - MIDDLE EAR EFFUSION [None]
  - POSTURE ABNORMAL [None]
  - SWOLLEN TONGUE [None]
  - TINNITUS [None]
